FAERS Safety Report 10784323 (Version 1)
Quarter: 2015Q1

REPORT INFORMATION
  Report Type: Spontaneous
  Country: US (occurrence: None)
  Receive Date: 20150209
  Receipt Date: 20150209
  Transmission Date: 20150721
  Serious: No
  Sender: FDA-Public Use
  Company Number: None

PATIENT
  Age: 4 Year
  Sex: Male
  Weight: 20.41 kg

DRUGS (2)
  1. FLONASE [Suspect]
     Active Substance: FLUTICASONE PROPIONATE
     Indication: RHINORRHOEA
     Dosage: 1 SPRAY PER NOSTRIL (2 TOTAL) ONCE DAILY
     Route: 055
     Dates: start: 20150104, end: 20150205
  2. FLONASE [Suspect]
     Active Substance: FLUTICASONE PROPIONATE
     Indication: HYPERSENSITIVITY
     Dosage: 1 SPRAY PER NOSTRIL (2 TOTAL) ONCE DAILY
     Route: 055
     Dates: start: 20150104, end: 20150205

REACTIONS (7)
  - Anxiety [None]
  - Anger [None]
  - Disturbance in attention [None]
  - Nervousness [None]
  - Mood swings [None]
  - Abnormal behaviour [None]
  - Aggression [None]

NARRATIVE: CASE EVENT DATE: 20150104
